FAERS Safety Report 5219125-6 (Version None)
Quarter: 2007Q1

REPORT INFORMATION
  Report Type: 
  Country: None (occurrence: None)
  Receive Date: 20070124
  Receipt Date: 20070124
  Transmission Date: 20070707
  Serious: Yes (Other)
  Sender: FDA-Public Use
  Company Number: None

PATIENT
  Sex: Male
  Weight: 116.3 kg

DRUGS (16)
  1. INVANZ [Suspect]
     Indication: ABSCESS LIMB
     Dosage: 1GM  EVERY 24 HRS  IVPB
     Route: 042
     Dates: start: 20070105, end: 20070110
  2. INVANZ [Suspect]
     Indication: CELLULITIS
     Dosage: 1GM  EVERY 24 HRS  IVPB
     Route: 042
     Dates: start: 20070105, end: 20070110
  3. INVANZ [Suspect]
     Indication: IMPAIRED HEALING
     Dosage: 1GM  EVERY 24 HRS  IVPB
     Route: 042
     Dates: start: 20070105, end: 20070110
  4. TOPROL-XL [Concomitant]
  5. HUMAN INSULIN [Concomitant]
  6. LIPITOR [Concomitant]
  7. FOLIC ACID [Concomitant]
  8. ASPIRIN [Concomitant]
  9. AMBIEN [Concomitant]
  10. PEPCID [Concomitant]
  11. SYNTHROID [Concomitant]
  12. DEMADEX [Concomitant]
  13. PLAVIX [Concomitant]
  14. AVAPRO [Concomitant]
  15. CYMBALTA [Concomitant]
  16. PHENERGAN [Concomitant]

REACTIONS (1)
  - HALLUCINATION [None]
